FAERS Safety Report 4655848-5 (Version None)
Quarter: 2005Q2

REPORT INFORMATION
  Report Type: 
  Country: None (occurrence: None)
  Receive Date: 20050506
  Receipt Date: 20050506
  Transmission Date: 20051028
  Serious: Yes (Hospitalization)
  Sender: FDA-Public Use
  Company Number: None

PATIENT
  Age: 49 Year
  Sex: Female
  Weight: 84 kg

DRUGS (6)
  1. TUMS [Suspect]
     Indication: ABDOMINAL PAIN UPPER
     Dosage: MULTIPLE AMTS  ORAL
     Route: 048
     Dates: start: 20050421, end: 20050425
  2. HYDROCODONE BITARTRATE [Concomitant]
  3. AMITRIPTYLINE [Concomitant]
  4. ALPRAZOLAM [Concomitant]
  5. MICARDIS [Concomitant]
  6. NOVOLIN 70/30 [Concomitant]

REACTIONS (4)
  - HYPERCALCAEMIA [None]
  - MEDICATION ERROR [None]
  - OVERDOSE [None]
  - VOMITING [None]
